FAERS Safety Report 24895377 (Version 2)
Quarter: 2025Q3

REPORT INFORMATION
  Report Type: Spontaneous
  Country: CA (occurrence: CA)
  Receive Date: 20250128
  Receipt Date: 20250904
  Transmission Date: 20251020
  Serious: Yes (Other)
  Sender: NORDIC PHARMA
  Company Number: CA-NORDICGR-058655

PATIENT
  Age: 67 Year
  Sex: Female

DRUGS (2)
  1. METHOTREXATE [Suspect]
     Active Substance: METHOTREXATE
     Indication: Product used for unknown indication
     Route: 065
  2. ORENCIA [Concomitant]
     Active Substance: ABATACEPT
     Indication: Rheumatoid arthritis
     Route: 058

REACTIONS (9)
  - Acne [Recovering/Resolving]
  - Pain [Recovering/Resolving]
  - Cataract [Recovering/Resolving]
  - Hypoaesthesia [Recovering/Resolving]
  - Anxiety [Recovering/Resolving]
  - Limb injury [Recovering/Resolving]
  - Hypertensive crisis [Recovering/Resolving]
  - Heart rate increased [Recovering/Resolving]
  - Erythema [Recovering/Resolving]
